FAERS Safety Report 7775843-7 (Version None)
Quarter: 2011Q3

REPORT INFORMATION
  Report Type: 
  Country: None (occurrence: None)
  Receive Date: 20110923
  Receipt Date: 20110922
  Transmission Date: 20111222
  Serious: Yes (Other)
  Sender: FDA-Public Use
  Company Number: US-PFIZER INC-2011226550

PATIENT
  Sex: Male
  Weight: 79.365 kg

DRUGS (7)
  1. ADVAIR DISKUS 100/50 [Concomitant]
     Dosage: 250/50
  2. ALBUTEROL SULFATE [Concomitant]
     Dosage: UNK
  3. TRAMADOL [Concomitant]
     Indication: PAIN
     Dosage: UNK
  4. MORPHINE [Concomitant]
     Indication: PAIN
     Dosage: UNK
  5. LISINOPRIL [Concomitant]
     Indication: HYPERTENSION
     Dosage: UNK
  6. CHANTIX [Suspect]
     Indication: SMOKING CESSATION THERAPY
     Dosage: 0.5 MG, DAILY
     Dates: start: 20110901
  7. IBUPROFEN [Concomitant]
     Dosage: 800 MG, UNK

REACTIONS (1)
  - HAEMATOCHEZIA [None]
